FAERS Safety Report 7388057-X (Version None)
Quarter: 2011Q2

REPORT INFORMATION
  Report Type: 
  Country: None (occurrence: None)
  Receive Date: 20110401
  Receipt Date: 20110330
  Transmission Date: 20111010
  Serious: No
  Sender: FDA-Public Use
  Company Number: US-PFIZER INC-2011071366

PATIENT
  Sex: Female
  Weight: 118 kg

DRUGS (2)
  1. ADVIL LIQUI-GELS [Suspect]
     Indication: BACK PAIN
  2. ADVIL LIQUI-GELS [Suspect]
     Indication: TOOTHACHE
     Dosage: UNK
     Route: 048
     Dates: start: 20110319, end: 20110329

REACTIONS (2)
  - DRUG INEFFECTIVE [None]
  - INTENTIONAL DRUG MISUSE [None]
